FAERS Safety Report 6879967-8 (Version None)
Quarter: 2010Q3

REPORT INFORMATION
  Report Type: 
  Country: None (occurrence: None)
  Receive Date: 20100728
  Receipt Date: 20100715
  Transmission Date: 20110219
  Serious: Yes (Other)
  Sender: FDA-Public Use
  Company Number: US-TYCO HEALTHCARE/MALLINCKRODT-T201001632

PATIENT
  Age: 42 Year
  Sex: Male

DRUGS (12)
  1. METHADONE HCL [Suspect]
     Indication: NEURALGIA
     Dosage: 2 TABS Q8-12 HOURS
     Route: 048
     Dates: start: 20100326, end: 20100401
  2. METHADONE HCL [Suspect]
     Dosage: 4 TABS Q 12 HOUR
     Route: 048
     Dates: start: 20100401, end: 20100429
  3. METHADONE HCL [Suspect]
     Dosage: 3 TABS IN AM, 2 TABS AT 1500, 3 TABS AT BEDTIME
     Route: 048
     Dates: start: 20100429, end: 20100501
  4. METHADONE HCL [Suspect]
     Dosage: 2 TABS Q8 HOURS
     Route: 048
     Dates: start: 20100505, end: 20100513
  5. METHADONE HCL [Suspect]
     Dosage: 3 TABS IN AM, 2 TABS AT 1500, 3 TABS AT BEDTIME
     Route: 048
     Dates: start: 20100518, end: 20100713
  6. METHADONE HCL [Suspect]
     Dosage: 1 TAB Q 8 HOURS
     Route: 048
     Dates: start: 20100713
  7. CYMBALTA [Concomitant]
     Dosage: UNK
  8. DILAUDID [Concomitant]
     Indication: BREAKTHROUGH PAIN
     Dosage: 2 MG Q6
  9. DIAZEPAM [Concomitant]
     Dosage: UNK
  10. COLACE [Concomitant]
  11. TOPAMAX [Concomitant]
     Dosage: UNK
  12. OXYCONTIN [Concomitant]
     Dosage: 40 MG Q12
     Dates: start: 20100513, end: 20100518

REACTIONS (19)
  - AMNESIA [None]
  - CONSTIPATION [None]
  - DECREASED APPETITE [None]
  - DISTURBANCE IN ATTENTION [None]
  - DROOLING [None]
  - DRUG EFFECT DECREASED [None]
  - DRUG WITHDRAWAL SYNDROME [None]
  - DRY MOUTH [None]
  - DRY SKIN [None]
  - HEADACHE [None]
  - HYPERHIDROSIS [None]
  - HYPOTENSION [None]
  - OROPHARYNGEAL PAIN [None]
  - OTORRHOEA [None]
  - SEDATION [None]
  - SUICIDAL IDEATION [None]
  - URINARY RETENTION [None]
  - VOMITING [None]
  - WEIGHT DECREASED [None]
